FAERS Safety Report 6802823-8 (Version None)
Quarter: 2010Q2

REPORT INFORMATION
  Report Type: 
  Country: None (occurrence: None)
  Receive Date: 20100628
  Receipt Date: 20100622
  Transmission Date: 20101027
  Serious: Yes (Death, Other)
  Sender: FDA-Public Use
  Company Number: PHHY2009GB44135

PATIENT
  Sex: Male
  Weight: 55 kg

DRUGS (10)
  1. CLOZARIL [Suspect]
     Indication: SCHIZOPHRENIA
     Dosage: 300 MG
     Dates: start: 20090916
  2. DEPAKOTE [Concomitant]
     Indication: HYPOMANIA
     Dosage: 500 MG, TID
     Dates: start: 20091001
  3. NULYTELY [Concomitant]
     Dosage: TWO SACHETS DAILY
     Dates: start: 20091001
  4. HALOPERIDOL [Concomitant]
     Indication: HYPOMANIA
     Dosage: 10 MG, TID
     Dates: start: 20091001
  5. CHLORMETHIAZOLE [Concomitant]
     Dosage: 15 ML
     Dates: start: 20091001
  6. PROCYCLIDINE HYDROCHLORIDE 2MG TAB [Concomitant]
     Dosage: 5 MG, TID
     Dates: start: 20091001
  7. OMEPRAZOLE [Concomitant]
     Dosage: 20 MG
     Dates: start: 20091001
  8. LACTULOSE [Concomitant]
     Dosage: 10 ML
     Dates: start: 20091001
  9. ENSURE PLUS [Concomitant]
     Dosage: UNK
     Dates: start: 20091001
  10. CARBAMAZEPINE [Concomitant]

REACTIONS (8)
  - ASPHYXIA [None]
  - ASPIRATION [None]
  - CHOKING [None]
  - CIRCULATORY COLLAPSE [None]
  - COUGH [None]
  - GASTRITIS [None]
  - OBSTRUCTIVE AIRWAYS DISORDER [None]
  - REGURGITATION [None]
